FAERS Safety Report 10501357 (Version 2)
Quarter: 2020Q3

REPORT INFORMATION
  Report Type: Spontaneous
  Country: PT (occurrence: PT)
  Receive Date: 20141007
  Receipt Date: 20200731
  Transmission Date: 20201102
  Serious: Yes (Death)
  Sender: FDA-Public Use
  Company Number: PT-JNJFOC-20141001654

PATIENT
  Age: 44 Year
  Sex: Female

DRUGS (9)
  1. TRITICUM [Suspect]
     Active Substance: TRAZODONE HYDROCHLORIDE
     Route: 048
  2. TRITICUM [Suspect]
     Active Substance: TRAZODONE HYDROCHLORIDE
     Route: 048
  3. TRITICUM [Suspect]
     Active Substance: TRAZODONE HYDROCHLORIDE
     Indication: DEPRESSION
     Route: 048
  4. TRITICUM [Suspect]
     Active Substance: TRAZODONE HYDROCHLORIDE
     Route: 048
  5. QUETIAPINE. [Suspect]
     Active Substance: QUETIAPINE
     Indication: INSOMNIA
     Route: 048
  6. TOPIRAMATE. [Suspect]
     Active Substance: TOPIRAMATE
     Indication: PRODUCT USED FOR UNKNOWN INDICATION
     Route: 048
  7. TRITICUM [Suspect]
     Active Substance: TRAZODONE HYDROCHLORIDE
     Dosage: 600 MG TO 900 MG
     Route: 048
  8. TRITICUM [Suspect]
     Active Substance: TRAZODONE HYDROCHLORIDE
     Route: 048
  9. ABILIFY [Suspect]
     Active Substance: ARIPIPRAZOLE
     Indication: PRODUCT USED FOR UNKNOWN INDICATION
     Dosage: THERAPY DURATION ? 1 MONTH
     Route: 048

REACTIONS (3)
  - Insomnia [Unknown]
  - Death [Fatal]
  - Overdose [Fatal]

NARRATIVE: CASE EVENT DATE: 20140914
